FAERS Safety Report 17144569 (Version 1)
Quarter: 2019Q4

REPORT INFORMATION
  Report Type: Spontaneous
  Country: US (occurrence: US)
  Receive Date: 20191212
  Receipt Date: 20191212
  Transmission Date: 20200122
  Serious: Yes (Other)
  Sender: FDA-Public Use
  Company Number: US-AMGEN-USASP2019203161

PATIENT
  Age: 30 Year
  Sex: Male

DRUGS (1)
  1. CORLANOR [Suspect]
     Active Substance: IVABRADINE HYDROCHLORIDE
     Indication: PRODUCT USED FOR UNKNOWN INDICATION
     Dosage: 5 MILLIGRAM, BID
     Route: 065
     Dates: start: 20191204

REACTIONS (4)
  - Throat irritation [Unknown]
  - Pharyngeal swelling [Unknown]
  - Sensation of foreign body [Unknown]
  - Dysphagia [Unknown]

NARRATIVE: CASE EVENT DATE: 20191204
